FAERS Safety Report 6231874-X (Version None)
Quarter: 2009Q2

REPORT INFORMATION
  Report Type: 
  Country: None (occurrence: None)
  Receive Date: 20090612
  Receipt Date: 20090612
  Transmission Date: 20091009
  Serious: Yes (Hospitalization)
  Sender: FDA-Public Use
  Company Number: None

PATIENT
  Sex: Female
  Weight: 65.7716 kg

DRUGS (1)
  1. BONIVA [Suspect]
     Indication: OSTEOPOROSIS POSTMENOPAUSAL
     Dosage: 3MG/ 3ML EVERY 3 MONTHS IV ONE DOSE GIVEN
     Route: 042
     Dates: start: 20090226, end: 20090226

REACTIONS (1)
  - OSTEONECROSIS [None]
